FAERS Safety Report 17475673 (Version 1)
Quarter: 2020Q1

REPORT INFORMATION
  Report Type: Report from Study
  Country: GB (occurrence: GB)
  Receive Date: 20200228
  Receipt Date: 20200228
  Transmission Date: 20200409
  Serious: Yes (Death)
  Sender: FDA-Public Use
  Company Number: GB-JNJFOC-20190905401

PATIENT
  Age: 87 Year
  Sex: Male
  Weight: 87.3 kg

DRUGS (7)
  1. BISOPROLOL [Concomitant]
     Active Substance: BISOPROLOL
     Route: 065
     Dates: start: 20030615
  2. TRAMADOL. [Concomitant]
     Active Substance: TRAMADOL
     Route: 065
     Dates: start: 20140715
  3. ASPRIN [Concomitant]
     Active Substance: ASPIRIN
     Route: 065
     Dates: start: 20030615
  4. CALCICHEW D3 [Concomitant]
     Active Substance: CALCIUM\CHOLECALCIFEROL
     Route: 065
     Dates: start: 20100715
  5. SIMVASTATIN. [Concomitant]
     Active Substance: SIMVASTATIN
     Route: 065
     Dates: start: 20140815
  6. MORPHINE [Concomitant]
     Active Substance: MORPHINE
     Route: 065
     Dates: start: 20150503
  7. STELARA [Suspect]
     Active Substance: USTEKINUMAB
     Indication: PSORIASIS
     Route: 058
     Dates: start: 20130722

REACTIONS (2)
  - Lower respiratory tract infection [Fatal]
  - Urosepsis [Fatal]

NARRATIVE: CASE EVENT DATE: 20190122
